FAERS Safety Report 23597019 (Version 1)
Quarter: 2024Q1

REPORT INFORMATION
  Report Type: Spontaneous
  Country: PL (occurrence: PL)
  Receive Date: 20240305
  Receipt Date: 20240305
  Transmission Date: 20240409
  Serious: Yes (Other)
  Sender: FDA-Public Use
  Company Number: PL-SUN PHARMACEUTICAL INDUSTRIES LTD-2024RR-432397

PATIENT
  Age: 28 Year
  Sex: Female

DRUGS (4)
  1. VENLAFAXINE [Suspect]
     Active Substance: VENLAFAXINE HYDROCHLORIDE
     Indication: Depression
     Dosage: 37.6 MILLIGRAM, 2 X 75 MG
     Route: 065
  2. IBUPROFEN [Suspect]
     Active Substance: IBUPROFEN
     Indication: Migraine
     Dosage: 400 MILLIGRAM
     Route: 048
  3. AMITRIPTYLINE [Suspect]
     Active Substance: AMITRIPTYLINE
     Indication: Depression
     Dosage: 50 MILLIGRAM, QD (DAILY)
     Route: 065
  4. SUMATRIPTAN [Suspect]
     Active Substance: SUMATRIPTAN
     Indication: Migraine
     Dosage: 100 MILLIGRAM
     Route: 065

REACTIONS (8)
  - Cognitive disorder [Unknown]
  - Migraine [Recovering/Resolving]
  - Somnolence [Unknown]
  - Headache [Recovering/Resolving]
  - Dry mouth [Unknown]
  - Drug abuse [Unknown]
  - Incorrect dose administered [Unknown]
  - Drug ineffective [Unknown]
